FAERS Safety Report 9429028 (Version 1)
Quarter: 2013Q3

REPORT INFORMATION
  Report Type: Report from Study
  Country: IN (occurrence: IN)
  Receive Date: 20130730
  Receipt Date: 20130730
  Transmission Date: 20140515
  Serious: Yes (Death)
  Sender: FDA-Public Use
  Company Number: IN-PFIZER INC-2013217932

PATIENT
  Sex: 0

DRUGS (1)
  1. CRIZOTINIB [Suspect]

REACTIONS (1)
  - Death [Fatal]
